FAERS Safety Report 21090154 (Version 2)
Quarter: 2022Q3

REPORT INFORMATION
  Report Type: Spontaneous
  Country: JP (occurrence: JP)
  Receive Date: 20220715
  Receipt Date: 20220927
  Transmission Date: 20221027
  Serious: Yes (Hospitalization, Other)
  Sender: FDA-Public Use
  Company Number: JP-GILEAD-2022-0589274

PATIENT
  Age: 56 Year
  Sex: Male
  Weight: 74 kg

DRUGS (2)
  1. VEKLURY [Suspect]
     Active Substance: REMDESIVIR
     Indication: COVID-19
     Dosage: UNK
     Route: 065
  2. DEXAMETHASONE [Concomitant]
     Active Substance: DEXAMETHASONE
     Indication: COVID-19

REACTIONS (6)
  - Renal disorder [Unknown]
  - Cytomegalovirus enteritis [Unknown]
  - Bacteraemia [Unknown]
  - Penile abscess [Unknown]
  - Pseudomonas infection [Unknown]
  - Sepsis [Unknown]
